FAERS Safety Report 14363930 (Version 1)
Quarter: 2018Q1

REPORT INFORMATION
  Report Type: Other
  Country: NO (occurrence: NO)
  Receive Date: 20180108
  Receipt Date: 20180108
  Transmission Date: 20180509
  Serious: Yes (Hospitalization)
  Sender: FDA-Public Use
  Company Number: NO-CELLTRION INC.-2018NO017178

PATIENT

DRUGS (2)
  1. REMSIMA [Suspect]
     Active Substance: INFLIXIMAB
     Indication: RASH PUSTULAR
     Dosage: 400 MG ONCE EVERY 4-6 WEEKS
     Route: 042
     Dates: start: 201703, end: 201703
  2. REMSIMA [Suspect]
     Active Substance: INFLIXIMAB
     Dosage: 400 MG ONCE EVERY 4-6 WEEKS
     Route: 042
     Dates: start: 20170831, end: 20170831

REACTIONS (4)
  - Pulmonary sarcoidosis [Not Recovered/Not Resolved]
  - Neurosarcoidosis [Not Recovered/Not Resolved]
  - Lacrimal disorder [Not Recovered/Not Resolved]
  - Off label use [Unknown]

NARRATIVE: CASE EVENT DATE: 201703
